FAERS Safety Report 4289489-9 (Version None)
Quarter: 2004Q1

REPORT INFORMATION
  Report Type: 
  Country: None (occurrence: None)
  Receive Date: 20040206
  Receipt Date: 20040126
  Transmission Date: 20041129
  Serious: Yes (Life-Threatening, Other)
  Sender: FDA-Public Use
  Company Number: 2004-UK-00075UK

PATIENT
  Age: 76 Year
  Sex: Male

DRUGS (12)
  1. MOBIC [Suspect]
     Indication: OSTEOARTHRITIS
     Dosage: 1 ANZ (NR, OM)
     Dates: start: 20020121, end: 20020128
  2. ASPIRIN [Concomitant]
  3. ENALAPRIL MALEATE (ENALAPRIL MALEATE) (NR) [Concomitant]
  4. SALBUTAMOL (SALBUTAMOL) (NR) [Concomitant]
  5. SENNA (SENNA) (NR) [Concomitant]
  6. GAVISCON [Concomitant]
  7. GLYCERYL TRINITRATE (GLYCERYL TRINITRATE) (NR) [Concomitant]
  8. AMLODIPINE BESYLATE (NR) [Concomitant]
  9. PARACETAMOL (PARACETAMOL) (NR) [Concomitant]
  10. MOVELAT (MOVELAT) (NR) [Concomitant]
  11. BECLOMETHASONE DIPROPIONATE [Concomitant]
  12. MONOMAX (ISOSORBIDE MONONITRATE) (NR) [Concomitant]

REACTIONS (1)
  - CARDIAC FAILURE CONGESTIVE [None]
